FAERS Safety Report 17771082 (Version 2)
Quarter: 2020Q2

REPORT INFORMATION
  Report Type: Spontaneous
  Country: AU (occurrence: AU)
  Receive Date: 20200512
  Receipt Date: 20200618
  Transmission Date: 20200714
  Serious: Yes (Hospitalization, Other)
  Sender: FDA-Public Use
  Company Number: AU-AMGEN-AUSSP2020073379

PATIENT
  Age: 54 Year
  Sex: Female

DRUGS (1)
  1. PROLIA [Suspect]
     Active Substance: DENOSUMAB
     Indication: OSTEOPOROSIS
     Dosage: 60 MILLIGRAM, Q6MO
     Route: 058
     Dates: start: 201601, end: 201811

REACTIONS (9)
  - Lethargy [Unknown]
  - Stress fracture [Unknown]
  - Breast cancer [Unknown]
  - Unevaluable event [Unknown]
  - Blood calcium increased [Recovered/Resolved]
  - Asthenia [Unknown]
  - Blood parathyroid hormone increased [Recovered/Resolved]
  - Malaise [Not Recovered/Not Resolved]
  - Alopecia [Unknown]

NARRATIVE: CASE EVENT DATE: 201910
